FAERS Safety Report 23485779 (Version 1)
Quarter: 2024Q1

REPORT INFORMATION
  Report Type: Spontaneous
  Country: US (occurrence: US)
  Receive Date: 20240206
  Receipt Date: 20240206
  Transmission Date: 20240410
  Serious: Yes (Other)
  Sender: FDA-Public Use
  Company Number: US-AMGEN-USASP2024018917

PATIENT
  Age: 63 Year
  Sex: Male

DRUGS (10)
  1. BEVACIZUMAB [Suspect]
     Active Substance: BEVACIZUMAB
     Indication: Colorectal cancer
     Dosage: UNK, 7 CYCLES
     Route: 065
  2. PANITUMUMAB [Suspect]
     Active Substance: PANITUMUMAB
     Indication: Colorectal cancer metastatic
     Dosage: 6 MILLIGRAM/KILOGRAM, Q2WK (14 CYCLES)
     Route: 042
  3. PANITUMUMAB [Suspect]
     Active Substance: PANITUMUMAB
     Indication: N-ras gene mutation
  4. SOTORASIB [Suspect]
     Active Substance: SOTORASIB
     Indication: Colorectal cancer metastatic
     Dosage: 960 MILLIGRAM, QD (14 CYCLES)
     Route: 065
  5. SOTORASIB [Suspect]
     Active Substance: SOTORASIB
     Indication: N-ras gene mutation
  6. SOTORASIB [Suspect]
     Active Substance: SOTORASIB
     Indication: Off label use
  7. FLUOROURACIL;LEUCOVORIN;OXALIPLATIN [Concomitant]
     Indication: Colorectal cancer
     Dosage: 14 CYCLES
     Route: 065
  8. CAPECITABINE [Concomitant]
     Active Substance: CAPECITABINE
     Indication: Colorectal cancer
     Dosage: 10 CYCLES
     Route: 065
  9. FLUOROURACIL\IRINOTECAN\LEUCOVORIN [Concomitant]
     Active Substance: FLUOROURACIL\IRINOTECAN\LEUCOVORIN
     Indication: Colorectal cancer
     Dosage: 13 CYCLES
     Route: 065
  10. FLUOROURACIL\IRINOTECAN\LEUCOVORIN [Concomitant]
     Active Substance: FLUOROURACIL\IRINOTECAN\LEUCOVORIN
     Dosage: 23 CYCLES
     Route: 065

REACTIONS (7)
  - Colorectal cancer metastatic [Recovering/Resolving]
  - Drug effective for unapproved indication [Unknown]
  - Dermatitis acneiform [Unknown]
  - Nausea [Unknown]
  - Fatigue [Unknown]
  - Proteinuria [Unknown]
  - Off label use [Unknown]
